FAERS Safety Report 4359678-3 (Version None)
Quarter: 2004Q2

REPORT INFORMATION
  Report Type: 
  Country: None (occurrence: None)
  Receive Date: 20040517
  Receipt Date: 20040517
  Transmission Date: 20050107
  Serious: Yes (Other)
  Sender: FDA-Public Use
  Company Number: None

PATIENT
  Age: 30 Year
  Sex: Female
  Weight: 52.1637 kg

DRUGS (1)
  1. DEPO-PROVERA [Suspect]
     Dosage: EVERY 3 MO IM
     Route: 030
     Dates: start: 20031104, end: 20040415

REACTIONS (7)
  - ACNE [None]
  - ALOPECIA [None]
  - DEPRESSION [None]
  - FATIGUE [None]
  - HAEMORRHAGE [None]
  - MOOD SWINGS [None]
  - SUICIDAL IDEATION [None]
